FAERS Safety Report 9321494 (Version 1)
Quarter: 2013Q2

REPORT INFORMATION
  Report Type: Report from Study
  Country: US (occurrence: US)
  Receive Date: 20130531
  Receipt Date: 20130531
  Transmission Date: 20140414
  Serious: Yes (Hospitalization, Other)
  Sender: FDA-Public Use
  Company Number: GXBR2013US001153

PATIENT
  Age: 13 Year
  Sex: Female

DRUGS (6)
  1. OMNITROPE [Suspect]
     Dosage: 2 MG, QD
     Route: 058
     Dates: end: 20130519
  2. XOPENEX [Suspect]
     Dosage: UNK DF, UNK
  3. DELSYM [Suspect]
     Dosage: UNK DF, UNK
  4. ZYRTEC [Concomitant]
     Indication: HYPERSENSITIVITY
     Dosage: UNK DF, UNK
  5. DULERA [Concomitant]
     Indication: ASTHMA
     Dosage: UNK DF, UNK
  6. SINGULAIR [Concomitant]
     Indication: HYPERSENSITIVITY
     Dosage: UNK DF, UNK

REACTIONS (5)
  - Psychogenic seizure [Not Recovered/Not Resolved]
  - Tremor [Not Recovered/Not Resolved]
  - Conversion disorder [Not Recovered/Not Resolved]
  - Cough [Recovered/Resolved]
  - Malaise [Unknown]
